FAERS Safety Report 7262495-8 (Version None)
Quarter: 2011Q1

REPORT INFORMATION
  Report Type: 
  Country: None (occurrence: None)
  Receive Date: 20110130
  Receipt Date: 20101209
  Transmission Date: 20110831
  Serious: No
  Sender: FDA-Public Use
  Company Number: US-ABBOTT-10P-163-0690562-00

PATIENT
  Age: 28 Year
  Sex: Female

DRUGS (12)
  1. ASACOL [Concomitant]
     Indication: CROHN'S DISEASE
     Dosage: 3 TABLETS TWO TIMES DAILY
     Route: 048
  2. IRON [Concomitant]
     Indication: ANAEMIA
  3. ACCUFLORA [Concomitant]
     Indication: CROHN'S DISEASE
     Route: 048
  4. FISH OIL [Concomitant]
     Indication: ASTHMA
  5. VIT D3 [Concomitant]
     Indication: PROPHYLAXIS
     Dosage: 200 UNITS 3 TABLETS IN AM AND 2 TABLETS
  6. VIT D3 [Concomitant]
     Indication: BONE DENSITY DECREASED
  7. HUMIRA [Suspect]
     Indication: CROHN'S DISEASE
     Dates: start: 20100801
  8. ADVAIR [Concomitant]
     Indication: HYPERSENSITIVITY
     Dosage: 250/50 MCG
     Route: 048
  9. ZYRTEC [Concomitant]
     Indication: NASOPHARYNGITIS
  10. FISH OIL [Concomitant]
     Indication: INFLAMMATION
  11. BIOTIN [Concomitant]
     Indication: CROHN'S DISEASE
  12. MAGNESIUM [Concomitant]
     Indication: PRODUCT USED FOR UNKNOWN INDICATION
     Route: 048

REACTIONS (2)
  - RESPIRATORY TRACT INFECTION VIRAL [None]
  - NASOPHARYNGITIS [None]
